FAERS Safety Report 16714807 (Version 1)
Quarter: 2019Q3

REPORT INFORMATION
  Report Type: Spontaneous
  Country: FR (occurrence: FR)
  Receive Date: 20190819
  Receipt Date: 20190819
  Transmission Date: 20191005
  Serious: Yes (Other)
  Sender: FDA-Public Use
  Company Number: FR-MYLANLABS-2019M1076428

PATIENT
  Age: 71 Year
  Sex: Male

DRUGS (3)
  1. KETOCONAZOLE. [Suspect]
     Active Substance: KETOCONAZOLE
     Dosage: 400 MILLIGRAM
     Route: 065
     Dates: end: 2015
  2. KETOCONAZOLE. [Suspect]
     Active Substance: KETOCONAZOLE
     Indication: PITUITARY-DEPENDENT CUSHING^S SYNDROME
     Dosage: AFTER 2 DAYS, THE DOSE WAS INCREASED TO 400MG TWICE DAILY
     Route: 065
     Dates: start: 201507
  3. CABERGOLINE. [Concomitant]
     Active Substance: CABERGOLINE
     Indication: CUSHING^S SYNDROME
     Route: 065
     Dates: start: 201507

REACTIONS (2)
  - Hepatotoxicity [Unknown]
  - Abdominal symptom [Unknown]

NARRATIVE: CASE EVENT DATE: 2015
